FAERS Safety Report 6540722-X (Version None)
Quarter: 2010Q1

REPORT INFORMATION
  Report Type: 
  Country: None (occurrence: None)
  Receive Date: 20100118
  Receipt Date: 20100111
  Transmission Date: 20100710
  Serious: Yes (Hospitalization)
  Sender: FDA-Public Use
  Company Number: DE-BAYER-201011537GPV

PATIENT
  Age: 52 Year

DRUGS (8)
  1. ZEVALIN [Suspect]
     Indication: NON-HODGKIN'S LYMPHOMA
     Dosage: DAY -21
  2. ZEVALIN [Suspect]
     Dosage: DAY -14
  3. YTRACIS [Suspect]
     Indication: NON-HODGKIN'S LYMPHOMA
     Dosage: DAY -14
  4. FLUDARABINE PHOSPHATE [Suspect]
     Indication: STEM CELL TRANSPLANT
     Dosage: DAY -21
  5. INDIUM 111 [Suspect]
     Indication: STEM CELL TRANSPLANT
     Dosage: DAY -21
  6. RITUXIMAB [Suspect]
     Indication: STEM CELL TRANSPLANT
     Dosage: DAY -21
  7. RITUXIMAB [Suspect]
     Dosage: DAY -14
  8. CYCLOSPORINE [Concomitant]
     Indication: IMMUNOSUPPRESSION

REACTIONS (1)
  - LARYNGEAL CANCER [None]
